FAERS Safety Report 10306314 (Version 1)
Quarter: 2014Q3

REPORT INFORMATION
  Report Type: Spontaneous
  Country: BR (occurrence: BR)
  Receive Date: 20140715
  Receipt Date: 20140715
  Transmission Date: 20150326
  Serious: Yes (Other)
  Sender: FDA-Public Use
  Company Number: PHHY2014BR086139

PATIENT
  Age: 7 Year
  Sex: Male

DRUGS (3)
  1. TACROLIMUS. [Suspect]
     Active Substance: TACROLIMUS
     Dosage: UNK UKN, UNK
  2. CICLOSPORIN [Suspect]
     Active Substance: CYCLOSPORINE
     Dosage: UNK UKN, UNK
  3. ANTIHISTAMINES [Suspect]
     Active Substance: ANTIHISTAMINES NOS
     Dosage: UNK UKN, UNK

REACTIONS (14)
  - Eye pruritus [Unknown]
  - Food allergy [Unknown]
  - Atypical mycobacterial lymphadenitis [Unknown]
  - Eyelid ptosis [Unknown]
  - Conjunctivitis allergic [Unknown]
  - Giant papillary conjunctivitis [Unknown]
  - Corneal thickening [Unknown]
  - Atopy [Unknown]
  - Asthma [Unknown]
  - Photophobia [Unknown]
  - Eye disorder [Unknown]
  - Rhinitis allergic [Unknown]
  - Eye discharge [Unknown]
  - Pruritus [Unknown]
